FAERS Safety Report 15464365 (Version 1)
Quarter: 2018Q4

REPORT INFORMATION
  Report Type: Spontaneous
  Country: US (occurrence: US)
  Receive Date: 20181004
  Receipt Date: 20181004
  Transmission Date: 20190204
  Serious: No
  Sender: FDA-Public Use
  Company Number: US-ASTRAZENECA-2018SF28484

PATIENT
  Sex: Female

DRUGS (1)
  1. TUDORZA [Suspect]
     Active Substance: ACLIDINIUM BROMIDE
     Route: 055

REACTIONS (3)
  - Frustration tolerance decreased [Unknown]
  - Device failure [Unknown]
  - Device malfunction [Unknown]
